FAERS Safety Report 19146601 (Version 4)
Quarter: 2021Q4

REPORT INFORMATION
  Report Type: Spontaneous
  Country: JP (occurrence: JP)
  Receive Date: 20210416
  Receipt Date: 20211202
  Transmission Date: 20220303
  Serious: Yes (Death, Hospitalization, Other)
  Sender: FDA-Public Use
  Company Number: JP-ASTELLAS-2021JP002185

PATIENT
  Age: 94 Year
  Sex: Female

DRUGS (11)
  1. AMLODIPINE BESYLATE [Suspect]
     Active Substance: AMLODIPINE BESYLATE
     Dosage: 2.5 MG, 1X/DAY
     Route: 048
  2. ATORVASTATIN [Suspect]
     Active Substance: ATORVASTATIN
     Indication: Hypercholesterolaemia
     Dosage: 5 MG, 1X/DAY
     Route: 048
  3. ROXADUSTAT [Suspect]
     Active Substance: ROXADUSTAT
     Indication: Nephrogenic anaemia
     Dosage: 50 MG, DAILY
     Route: 048
     Dates: start: 20210121, end: 20210130
  4. FEBUXOSTAT [Suspect]
     Active Substance: FEBUXOSTAT
     Dosage: 20 MG, DAILY
     Route: 048
  5. FUROSEMIDE [Suspect]
     Active Substance: FUROSEMIDE
     Dosage: 20 MG, DAILY
     Route: 048
  6. LEVOTHYROXINE [Suspect]
     Active Substance: LEVOTHYROXINE
     Dosage: 25 UG, DAILY
     Route: 048
  7. NEXIUM [Concomitant]
     Active Substance: ESOMEPRAZOLE MAGNESIUM
     Dosage: 20 MG, DAILY
     Route: 048
  8. KETOPROFEN [Concomitant]
     Active Substance: KETOPROFEN
     Dosage: 20 MG, DAILY
  9. KETOPROFEN [Concomitant]
     Active Substance: KETOPROFEN
     Dosage: 120 MG/DAY, UNKNOWN FREQ (TAPE (INCLUDING POULTICE) )
  10. SODIUM PICOSULFATE [Concomitant]
     Active Substance: SODIUM PICOSULFATE
     Dosage: UNK
     Route: 048
  11. MIRCERA [Concomitant]
     Active Substance: METHOXY POLYETHYLENE GLYCOL-EPOETIN BETA
     Indication: Nephrogenic anaemia
     Dosage: UNK

REACTIONS (5)
  - Intestinal perforation [Fatal]
  - Angina pectoris [Recovering/Resolving]
  - Venous thrombosis limb [Not Recovered/Not Resolved]
  - Off label use [Unknown]
  - Product use issue [Unknown]

NARRATIVE: CASE EVENT DATE: 20210121
